FAERS Safety Report 8340226-8 (Version None)
Quarter: 2012Q2

REPORT INFORMATION
  Report Type: 
  Country: None (occurrence: None)
  Receive Date: 20120507
  Receipt Date: 20120424
  Transmission Date: 20120825
  Serious: Yes (Hospitalization)
  Sender: FDA-Public Use
  Company Number: PHHY2012FR038082

PATIENT
  Sex: Female

DRUGS (2)
  1. DAFLON (DIOSMIN) [Suspect]
     Dosage: 2 DF
     Dates: start: 20120412, end: 20120412
  2. PARLODEL [Suspect]
     Indication: LACTATION INHIBITION THERAPY
     Dosage: 1.25 MG, HALF TABLET
     Route: 048
     Dates: start: 20120412, end: 20120412

REACTIONS (4)
  - RASH [None]
  - PRURITUS [None]
  - ANGIOEDEMA [None]
  - DYSPNOEA [None]
